FAERS Safety Report 7213048 (Version 1)
Quarter: 2020Q3

REPORT INFORMATION
  Report Type: Report from Study
  Country: US (occurrence: US)
  Receive Date: 20091211
  Receipt Date: 20091211
  Transmission Date: 20201105
  Serious: Yes (Other)
  Sender: FDA-Public Use
  Company Number: US-ROCHE-672947

PATIENT
  Age: 66 Year
  Sex: Female
  Weight: 95.3 kg

DRUGS (7)
  1. IBANDRONIC ACID. [Suspect]
     Active Substance: IBANDRONIC ACID
     Indication: OSTEOPOROSIS
     Route: 048
     Dates: start: 200904, end: 200911
  2. METFORMIN HYDROCHLORIDE. [Suspect]
     Active Substance: METFORMIN HYDROCHLORIDE
     Route: 048
  3. GLEEVEC [Concomitant]
     Active Substance: IMATINIB MESYLATE
  4. ATENOLOL. [Concomitant]
     Active Substance: ATENOLOL
  5. PREDNISONE. [Concomitant]
     Active Substance: PREDNISONE
  6. MORPHINE [Concomitant]
     Active Substance: MORPHINE
  7. METFORMIN HYDROCHLORIDE. [Suspect]
     Active Substance: METFORMIN HYDROCHLORIDE
     Route: 048

REACTIONS (4)
  - Gastric disorder [Unknown]
  - Oesophageal ulcer haemorrhage [Recovered/Resolved]
  - Diabetes mellitus [Unknown]
  - Abdominal discomfort [Recovered/Resolved]

NARRATIVE: CASE EVENT DATE: 20090701
